FAERS Safety Report 14035557 (Version 1)
Quarter: 2017Q4

REPORT INFORMATION
  Report Type: Spontaneous
  Country: DE (occurrence: DE)
  Receive Date: 20171003
  Receipt Date: 20171003
  Transmission Date: 20180321
  Serious: Yes (Hospitalization)
  Sender: FDA-Public Use
  Company Number: PHHY2017DE142265

PATIENT
  Sex: Female
  Weight: 65 kg

DRUGS (1)
  1. ILARIS [Suspect]
     Active Substance: CANAKINUMAB
     Indication: STILL^S DISEASE
     Dosage: UNK
     Route: 042
     Dates: start: 20150803, end: 20160701

REACTIONS (5)
  - Rash [Recovered/Resolved]
  - Serum ferritin increased [Recovered/Resolved]
  - Still^s disease [Recovered/Resolved]
  - Pyrexia [Recovered/Resolved]
  - Red blood cell sedimentation rate increased [Recovered/Resolved]

NARRATIVE: CASE EVENT DATE: 2017
